FAERS Safety Report 8548642-6 (Version None)
Quarter: 2012Q3

REPORT INFORMATION
  Report Type: 
  Country: None (occurrence: None)
  Receive Date: 20120720
  Receipt Date: 20120720
  Transmission Date: 20120928
  Serious: Yes (Other)
  Sender: FDA-Public Use
  Company Number: None

PATIENT
  Sex: Female

DRUGS (5)
  1. METOPROLOL TARTRATE [Concomitant]
  2. MULTAQ [Concomitant]
  3. ATORVASTATIN [Suspect]
     Indication: BLOOD CHOLESTEROL INCREASED
     Dosage: 10 MG ONCE A DAY PO
     Route: 048
     Dates: start: 20120301, end: 20120716
  4. BENAZEPRIL HYDROCHLORIDE [Concomitant]
  5. . [Concomitant]

REACTIONS (7)
  - HEADACHE [None]
  - PAIN [None]
  - FATIGUE [None]
  - PRODUCT SUBSTITUTION ISSUE [None]
  - INSOMNIA [None]
  - HYPERTENSION [None]
  - PERSONALITY CHANGE [None]
